FAERS Safety Report 5904969-5 (Version None)
Quarter: 2008Q4

REPORT INFORMATION
  Report Type: 
  Country: None (occurrence: None)
  Receive Date: 20081001
  Receipt Date: 20080919
  Transmission Date: 20090506
  Serious: Yes (Disabling, Other)
  Sender: FDA-Public Use
  Company Number: GB-SANOFI-SYNTHELABO-A01200807725

PATIENT
  Sex: Female
  Weight: 98 kg

DRUGS (12)
  1. CANDESARTAN [Concomitant]
     Indication: DRUG USE FOR UNKNOWN INDICATION
     Route: 065
     Dates: start: 20061025
  2. ATENOLOL [Concomitant]
     Indication: DRUG USE FOR UNKNOWN INDICATION
     Route: 065
     Dates: start: 20041129
  3. BENDROFLUMETHIAZIDE [Concomitant]
     Indication: DRUG USE FOR UNKNOWN INDICATION
     Route: 065
  4. PLAQUENIL [Suspect]
     Route: 065
     Dates: start: 20050616, end: 20060502
  5. PLAQUENIL [Suspect]
     Route: 065
     Dates: start: 20060503
  6. PLAQUENIL [Suspect]
     Route: 065
     Dates: start: 20070116, end: 20080301
  7. PLAQUENIL [Suspect]
     Dosage: UNK
     Route: 065
     Dates: start: 20080401
  8. ACETAMINOPHEN W/ CODEINE [Concomitant]
     Indication: DRUG USE FOR UNKNOWN INDICATION
     Dosage: 1 OR 2 TABLETS 4 TIMES A DAY
     Route: 065
     Dates: start: 20061016
  9. MOISTURISER [Concomitant]
     Indication: DRUG USE FOR UNKNOWN INDICATION
     Route: 065
  10. NASONEX [Concomitant]
     Indication: DRUG USE FOR UNKNOWN INDICATION
     Route: 065
  11. SLOW-K [Concomitant]
     Indication: DRUG USE FOR UNKNOWN INDICATION
     Route: 065
     Dates: start: 20020205
  12. MMR VACCIN [Suspect]
     Indication: MEASLES
     Dosage: UNK
     Route: 065
     Dates: start: 20070611, end: 20070611

REACTIONS (11)
  - ANAEMIA [None]
  - ASTHENIA [None]
  - CONDITION AGGRAVATED [None]
  - DEPRESSION [None]
  - FIBROMYALGIA [None]
  - HALLUCINATION [None]
  - MALAISE [None]
  - MEMORY IMPAIRMENT [None]
  - PAIN [None]
  - SYSTEMIC LUPUS ERYTHEMATOSUS [None]
  - WHEELCHAIR USER [None]
